FAERS Safety Report 15955077 (Version 6)
Quarter: 2019Q3

REPORT INFORMATION
  Report Type: Spontaneous
  Country: US (occurrence: US)
  Receive Date: 20190213
  Receipt Date: 20190919
  Transmission Date: 20191004
  Serious: No
  Sender: FDA-Public Use
  Company Number: US-PFIZER INC-2019063302

PATIENT
  Age: 74 Year
  Sex: Female

DRUGS (3)
  1. IBRANCE [Suspect]
     Active Substance: PALBOCICLIB
     Indication: BREAST CANCER FEMALE
     Dosage: 125 MG, UNK
     Dates: start: 20181004
  2. CAPECITABINE. [Concomitant]
     Active Substance: CAPECITABINE
     Dosage: 1500 MG, 2X/DAY [ONCE IN THE MORNING AND ONCE AT NIGHT]
  3. CAPSAICIN. [Suspect]
     Active Substance: CAPSAICIN
     Dosage: UNK

REACTIONS (13)
  - Dyspepsia [Not Recovered/Not Resolved]
  - Malaise [Unknown]
  - Burning sensation [Unknown]
  - Paraesthesia [Unknown]
  - Ear infection [Not Recovered/Not Resolved]
  - Neoplasm progression [Unknown]
  - Joint range of motion decreased [Unknown]
  - Erythema [Unknown]
  - Fatigue [Unknown]
  - Pruritus [Unknown]
  - Diarrhoea [Not Recovered/Not Resolved]
  - Dry skin [Unknown]
  - Pain in extremity [Unknown]
